FAERS Safety Report 9770314 (Version 2)
Quarter: 2014Q1

REPORT INFORMATION
  Report Type: Report from Study
  Country: US (occurrence: US)
  Receive Date: 20131218
  Receipt Date: 20140114
  Transmission Date: 20141002
  Serious: Yes (Hospitalization)
  Sender: FDA-Public Use
  Company Number: US-ACTELION-A-NJ2013-92367

PATIENT
  Age: 52 Year
  Sex: Female

DRUGS (3)
  1. TRACLEER [Suspect]
     Indication: SCLERODERMA
     Dosage: 125 MG, BID
     Route: 048
     Dates: start: 20110815, end: 20131114
  2. TRACLEER [Suspect]
     Dosage: 62.5 MG, BID
     Route: 048
     Dates: start: 20110601, end: 20110814
  3. SILDENAFIL [Concomitant]

REACTIONS (4)
  - Dysgeusia [Recovered/Resolved]
  - Abnormal loss of weight [Recovered/Resolved]
  - Gastric fistula [Recovered/Resolved]
  - Gastrectomy [Recovered/Resolved]
